FAERS Safety Report 10859039 (Version 1)
Quarter: 2015Q1

REPORT INFORMATION
  Report Type: Spontaneous
  Country: US (occurrence: US)
  Receive Date: 20150223
  Receipt Date: 20150223
  Transmission Date: 20150721
  Serious: No
  Sender: FDA-Public Use
  Company Number: US-AMGEN-USASP2014012431

PATIENT
  Age: 58 Year
  Sex: Female

DRUGS (13)
  1. ENBREL [Suspect]
     Active Substance: ETANERCEPT
     Indication: RHEUMATOID ARTHRITIS
     Dosage: 50 MG, QWK
     Route: 058
     Dates: start: 2010
  2. ESTRADIOL. [Concomitant]
     Active Substance: ESTRADIOL
     Dosage: UNK
  3. COQ 10 [Concomitant]
     Active Substance: UBIDECARENONE
     Dosage: UNK
  4. NIACIN. [Concomitant]
     Active Substance: NIACIN
     Dosage: UNK
  5. NALTREXONE [Concomitant]
     Active Substance: NALTREXONE
     Dosage: UNK
  6. PROGESTERONE. [Concomitant]
     Active Substance: PROGESTERONE
     Dosage: UNK
  7. FOLATE [Concomitant]
     Active Substance: FOLATE SODIUM
     Dosage: UNK
  8. NATURE-THROID [Concomitant]
     Active Substance: THYROID, PORCINE
     Dosage: UNK
  9. PREGNENOLONE [Concomitant]
     Active Substance: PREGNENOLONE
     Dosage: UNK
  10. ENBREL [Suspect]
     Active Substance: ETANERCEPT
  11. FISH OIL [Concomitant]
     Active Substance: FISH OIL
     Dosage: UNK
  12. IRON [Concomitant]
     Active Substance: IRON
     Dosage: UNK
  13. RED YEAST RICE [Concomitant]
     Active Substance: DIETARY SUPPLEMENT
     Dosage: UNK

REACTIONS (6)
  - Pain in extremity [Unknown]
  - Rheumatoid arthritis [Unknown]
  - Rash [Unknown]
  - Joint swelling [Unknown]
  - Peripheral swelling [Unknown]
  - Arthralgia [Unknown]

NARRATIVE: CASE EVENT DATE: 201312
